FAERS Safety Report 18267095 (Version 9)
Quarter: 2022Q1

REPORT INFORMATION
  Report Type: Spontaneous
  Country: US (occurrence: US)
  Receive Date: 20200915
  Receipt Date: 20220203
  Transmission Date: 20220423
  Serious: No
  Sender: FDA-Public Use
  Company Number: US-PFIZER INC-2020347637

PATIENT
  Age: 8 Year
  Sex: Male

DRUGS (1)
  1. GENOTROPIN [Suspect]
     Active Substance: SOMATROPIN
     Indication: Small for dates baby
     Dosage: 1 MG, DAILY FOR SIX DAYS, THEN OFF 1 DAY (12 MG PER MONTH)

REACTIONS (2)
  - Wrong technique in device usage process [Unknown]
  - Drug dose omission by device [Unknown]
